FAERS Safety Report 24787604 (Version 1)
Quarter: 2024Q4

REPORT INFORMATION
  Report Type: Spontaneous
  Country: US (occurrence: US)
  Receive Date: 20241230
  Receipt Date: 20241230
  Transmission Date: 20250115
  Serious: No
  Sender: AUROBINDO
  Company Number: US-AUROBINDO-AUR-APL-2024-036921

PATIENT
  Sex: Female

DRUGS (1)
  1. DEXTROAMPHETAMINE SACCHARATE, AMPHETAMINE ASPARTATE, DEXTROAMPHETAMINE [Suspect]
     Active Substance: AMPHETAMINE ASPARTATE\AMPHETAMINE SULFATE\DEXTROAMPHETAMINE SACCHARATE\DEXTROAMPHETAMINE SULFATE
     Indication: Sleep disorder
     Dosage: 20 MILLIGRAM ( TAKES 1/4 OF A TABLET A DAY)
     Route: 048

REACTIONS (6)
  - Dry mouth [Unknown]
  - Skin disorder [Unknown]
  - Libido decreased [Unknown]
  - Libido increased [Unknown]
  - Intentional product use issue [Unknown]
  - Drug ineffective [Unknown]
